FAERS Safety Report 6856441-6 (Version None)
Quarter: 2010Q3

REPORT INFORMATION
  Report Type: 
  Country: None (occurrence: None)
  Receive Date: 20100719
  Receipt Date: 20100707
  Transmission Date: 20110219
  Serious: Yes (Other)
  Sender: FDA-Public Use
  Company Number: US-ROCHE-704395

PATIENT
  Sex: Male
  Weight: 63.5 kg

DRUGS (2)
  1. CAPECITABINE [Suspect]
     Dosage: TAKEN 2 WEEKS ON AND ONE WEEK OFF.
     Route: 048
     Dates: start: 20091223, end: 20100414
  2. IRINOTECAN HCL [Concomitant]
     Indication: COLON CANCER
     Dosage: ON DAY 1.
     Route: 042

REACTIONS (5)
  - ASTHENIA [None]
  - DIARRHOEA [None]
  - PALMAR-PLANTAR ERYTHRODYSAESTHESIA SYNDROME [None]
  - SUICIDAL IDEATION [None]
  - WEIGHT DECREASED [None]
